FAERS Safety Report 7220694-5 (Version None)
Quarter: 2011Q1

REPORT INFORMATION
  Report Type: 
  Country: None (occurrence: None)
  Receive Date: 20110111
  Receipt Date: 20110104
  Transmission Date: 20110831
  Serious: Yes (Hospitalization, Other)
  Sender: FDA-Public Use
  Company Number: US-ELI_LILLY_AND_COMPANY-US201101001378

PATIENT
  Sex: Female

DRUGS (3)
  1. HUMULIN N [Suspect]
     Indication: DIABETES MELLITUS
     Dates: start: 20090101
  2. HUMULIN R [Suspect]
     Indication: DIABETES MELLITUS
     Dates: start: 20090101
  3. HUMALOG MIX 75/25 [Suspect]

REACTIONS (8)
  - RENAL FAILURE [None]
  - BLOOD GLUCOSE INCREASED [None]
  - DRUG DOSE OMISSION [None]
  - DIABETES MELLITUS INADEQUATE CONTROL [None]
  - BLINDNESS [None]
  - EYE HAEMORRHAGE [None]
  - HOSPITALISATION [None]
  - CATARACT [None]
